FAERS Safety Report 5651367-8 (Version None)
Quarter: 2008Q1

REPORT INFORMATION
  Report Type: 
  Country: None (occurrence: None)
  Receive Date: 20080305
  Receipt Date: 20080220
  Transmission Date: 20080703
  Serious: Yes (Death, Hospitalization, Other)
  Sender: FDA-Public Use
  Company Number: US-BAYER-US-2007-006375

PATIENT
  Age: 44 Year
  Sex: Female
  Weight: 90 kg

DRUGS (44)
  1. MAGNEVIST [Suspect]
     Indication: NUCLEAR MAGNETIC RESONANCE IMAGING
     Route: 042
     Dates: start: 19990210, end: 19990210
  2. MAGNEVIST [Suspect]
     Route: 042
     Dates: start: 20040618, end: 20040618
  3. MAGNEVIST [Suspect]
     Route: 042
     Dates: start: 20000125, end: 20000125
  4. MAGNEVIST [Suspect]
     Route: 042
     Dates: start: 19990504, end: 19990504
  5. MAGNEVIST [Suspect]
     Route: 042
     Dates: start: 19990328, end: 19990328
  6. MAGNEVIST [Suspect]
     Route: 042
     Dates: start: 19990319, end: 19990319
  7. MAGNEVIST [Suspect]
     Route: 042
     Dates: start: 19990304, end: 19990304
  8. MAGNEVIST [Suspect]
     Route: 042
     Dates: start: 19990217, end: 19990217
  9. MAGNEVIST [Suspect]
     Route: 042
  10. COUMADIN [Concomitant]
  11. ATROVENT [Concomitant]
  12. PREDNISONE TAB [Concomitant]
  13. TORSEMIDE [Concomitant]
  14. NEURONTIN [Concomitant]
  15. SINGULAIR [Concomitant]
  16. ADVAIR DISKUS 100/50 [Concomitant]
  17. ZANTAC 150 [Concomitant]
  18. ZOLOFT [Concomitant]
  19. RENAGEL [Concomitant]
     Dosage: UNIT DOSE: 800 MG
  20. K-DUR 10 [Concomitant]
  21. EPOGEN [Concomitant]
     Route: 058
  22. BACTRIM DS [Concomitant]
  23. PROCRIT [Concomitant]
  24. SENNA [Concomitant]
  25. NEPHROCAPS [Concomitant]
  26. DILAUDID [Concomitant]
  27. ALBUTEROL [Concomitant]
  28. ATIVAN [Concomitant]
  29. MAALOX /USA/ [Concomitant]
  30. DULCOLAX [Concomitant]
  31. ONDANSETRON HYDROCHLORIDE [Concomitant]
  32. COMPAZINE [Concomitant]
  33. AMIODARONE HCL [Concomitant]
  34. SEROQUEL [Concomitant]
  35. VASOPRESSIN AND ANALOGUES [Concomitant]
  36. HYDROCORTISONE [Concomitant]
  37. MIDODRINE [Concomitant]
  38. NEXIUM [Concomitant]
  39. NOREPINEPHRINE [Concomitant]
  40. ARANESP [Concomitant]
     Dosage: UNIT DOSE: 40 ?G
     Route: 058
  41. INSULIN [Concomitant]
  42. FISH OIL [Concomitant]
  43. LIDODERM [Concomitant]
  44. MIRENA [Concomitant]

REACTIONS (39)
  - ARTERIOVENOUS GRAFT THROMBOSIS [None]
  - ARTHRALGIA [None]
  - ASTHMA [None]
  - ATRIAL FIBRILLATION [None]
  - BRONCHOPNEUMONIA [None]
  - CARDIAC FAILURE CONGESTIVE [None]
  - CATHETER RELATED INFECTION [None]
  - CATHETER SEPSIS [None]
  - DRY SKIN [None]
  - DYSPNOEA [None]
  - ENDOCARDIAL FIBROSIS [None]
  - EXCORIATION [None]
  - EXTREMITY CONTRACTURE [None]
  - FLUID OVERLOAD [None]
  - HYPOTENSION [None]
  - INTERSTITIAL LUNG DISEASE [None]
  - JOINT CONTRACTURE [None]
  - JOINT RANGE OF MOTION DECREASED [None]
  - JOINT STIFFNESS [None]
  - LARGE INTESTINE PERFORATION [None]
  - MULTI-ORGAN FAILURE [None]
  - NEPHROGENIC SYSTEMIC FIBROSIS [None]
  - NEURALGIA [None]
  - OEDEMA PERIPHERAL [None]
  - PERITONEAL INFECTION [None]
  - PERITONITIS [None]
  - PERITONITIS BACTERIAL [None]
  - PRURITUS [None]
  - RESPIRATORY DISTRESS [None]
  - SEPSIS [None]
  - SEPTIC SHOCK [None]
  - SKIN FIBROSIS [None]
  - SKIN HYPERPIGMENTATION [None]
  - SKIN HYPERTROPHY [None]
  - SKIN INDURATION [None]
  - SKIN TIGHTNESS [None]
  - SLEEP APNOEA SYNDROME [None]
  - URINARY TRACT INFECTION [None]
  - VENOUS STASIS [None]
